FAERS Safety Report 9178755 (Version 1)
Quarter: 2012Q4

REPORT INFORMATION
  Report Type: 
  Country: US (occurrence: US)
  Receive Date: 20121029
  Receipt Date: 20121029
  Transmission Date: 20130627
  Serious: No
  Sender: FDA-Public Use
  Company Number: US-AMGEN-USASP2012053803

PATIENT
  Age: 51 Year
  Sex: Female

DRUGS (4)
  1. ENBREL [Suspect]
     Indication: PRODUCT USED FOR UNKNOWN INDICATION
     Dosage: 50 mg, qwk
     Route: 058
  2. CYMBALTA [Concomitant]
     Dosage: 20 mg, UNK
  3. LISINOPRIL [Concomitant]
     Dosage: 2.5 mg, UNK
  4. SIMVASTATIN [Concomitant]
     Dosage: 5 mg, UNK

REACTIONS (2)
  - Fatigue [Unknown]
  - Injection site bruising [Unknown]
